FAERS Safety Report 16129745 (Version 1)
Quarter: 2019Q1

REPORT INFORMATION
  Report Type: Spontaneous
  Country: IL (occurrence: IL)
  Receive Date: 20190328
  Receipt Date: 20190328
  Transmission Date: 20190418
  Serious: Yes (Other)
  Sender: FDA-Public Use
  Company Number: IL-NOVOPROD-653589

PATIENT
  Sex: Female

DRUGS (1)
  1. NOVOMIX 30 FLEXPEN [Suspect]
     Active Substance: INSULIN ASPART
     Indication: TYPE 2 DIABETES MELLITUS
     Dosage: CHANGES. AT NIGHT INJECTS MORE
     Route: 058

REACTIONS (3)
  - Retinal injury [Not Recovered/Not Resolved]
  - Heart valve replacement [Unknown]
  - Vascular graft [Unknown]
